FAERS Safety Report 24695725 (Version 1)
Quarter: 2024Q4

REPORT INFORMATION
  Report Type: Spontaneous
  Country: PT (occurrence: PT)
  Receive Date: 20241204
  Receipt Date: 20241204
  Transmission Date: 20250114
  Serious: Yes (Hospitalization, Other)
  Sender: BIOVITRUM
  Company Number: PT-BIOVITRUM-2024-PT-015282

PATIENT
  Age: 15 Year
  Sex: Female
  Weight: 80 kg

DRUGS (16)
  1. ANAKINRA [Suspect]
     Active Substance: ANAKINRA
     Indication: Haemophagocytic lymphohistiocytosis
     Dosage: 100MG 6/6H (5MG/KG/DAY)
     Route: 042
     Dates: start: 20241023
  2. ANAKINRA [Suspect]
     Active Substance: ANAKINRA
     Dosage: 6/6H
     Route: 042
     Dates: start: 20241119, end: 20241121
  3. ANAKINRA [Suspect]
     Active Substance: ANAKINRA
     Dosage: 12/12H
  4. METHYLPREDNISOLONE [Suspect]
     Active Substance: METHYLPREDNISOLONE
     Indication: Haemophagocytic lymphohistiocytosis
     Dosage: METHYLPREDNISOLONE PULSES 1G
     Route: 042
     Dates: start: 20241115, end: 20241118
  5. METHYLPREDNISOLONE [Suspect]
     Active Substance: METHYLPREDNISOLONE
     Dosage: METHYLPREDNISOLONE PULSES 500 MG
     Route: 042
     Dates: start: 20241123, end: 20241124
  6. METHYLPREDNISOLONE [Suspect]
     Active Substance: METHYLPREDNISOLONE
     Dosage: METHYLPREDNISOLONE 6 PULSES (1G ID)
     Route: 042
     Dates: start: 20241023, end: 20241028
  7. METHYLPREDNISOLONE [Suspect]
     Active Substance: METHYLPREDNISOLONE
     Dosage: MAINTENANCE DOSE, MAXIMUM DOSE 40 MG EVERY 8 HOURS
     Route: 042
     Dates: start: 20241028, end: 20241126
  8. METHYLPREDNISOLONE [Suspect]
     Active Substance: METHYLPREDNISOLONE
     Dosage: 1.5MG/KG/DAY
     Route: 042
  9. DEXAMETHASONE [Suspect]
     Active Substance: DEXAMETHASONE
     Indication: Haemophagocytic lymphohistiocytosis
     Dosage: 12/12H
  10. CYCLOSPORINE [Suspect]
     Active Substance: CYCLOSPORINE
     Indication: Haemophagocytic lymphohistiocytosis
     Dosage: 118.9 NG/ML
     Dates: start: 20241108
  11. CYCLOSPORINE [Suspect]
     Active Substance: CYCLOSPORINE
     Dosage: 98.3 NG/ML
     Dates: start: 20241111
  12. CYCLOSPORINE [Suspect]
     Active Substance: CYCLOSPORINE
     Dosage: 93 NG/ML -MAINTAINED CYCLOSPORINE DOSE
     Dates: start: 20241113
  13. CYCLOSPORINE [Suspect]
     Active Substance: CYCLOSPORINE
     Dosage: 77 NG/ML
     Dates: start: 20241115
  14. CYCLOSPORINE [Suspect]
     Active Substance: CYCLOSPORINE
     Dosage: 3 MG/KG/DAY (TARGET CONCENTRATION 200 UG/L)
     Dates: start: 20241027, end: 20241030
  15. CYCLOSPORINE [Suspect]
     Active Substance: CYCLOSPORINE
     Dosage: 338.3 NG/ML
     Dates: start: 20241107
  16. RUXOLITINIB [Suspect]
     Active Substance: RUXOLITINIB
     Indication: Haemophagocytic lymphohistiocytosis
     Dosage: 12/12H

REACTIONS (9)
  - Klebsiella urinary tract infection [Recovered/Resolved]
  - Oral candidiasis [Unknown]
  - Hypertension [Recovering/Resolving]
  - Thrombotic microangiopathy [Recovered/Resolved]
  - Pruritus [Unknown]
  - Off label use [Unknown]
  - Haemophagocytic lymphohistiocytosis [Unknown]
  - Condition aggravated [Unknown]
  - Paraesthesia oral [Unknown]

NARRATIVE: CASE EVENT DATE: 20241115
